FAERS Safety Report 8309370-5 (Version None)
Quarter: 2012Q2

REPORT INFORMATION
  Report Type: 
  Country: None (occurrence: None)
  Receive Date: 20120420
  Receipt Date: 20120418
  Transmission Date: 20120825
  Serious: Yes (Hospitalization)
  Sender: FDA-Public Use
  Company Number: 2012SP020274

PATIENT
  Age: 53 Year
  Sex: Female

DRUGS (4)
  1. VICTRELIS [Suspect]
     Indication: HEPATITIS C
     Dosage: 800 MG;TID
     Dates: start: 20111026
  2. NEORECORMON [Concomitant]
  3. VIRAFERONPEG [Suspect]
     Indication: HEPATITIS C
     Dates: start: 20110929
  4. REBETOL [Suspect]
     Indication: HEPATITIS C
     Dosage: 600 MG;QD
     Dates: start: 20110929

REACTIONS (6)
  - TREATMENT FAILURE [None]
  - CYSTITIS [None]
  - LUNG DISORDER [None]
  - PROTEUS TEST POSITIVE [None]
  - PYELONEPHRITIS [None]
  - ESCHERICHIA TEST POSITIVE [None]
